FAERS Safety Report 12389327 (Version 2)
Quarter: 2016Q3

REPORT INFORMATION
  Report Type: Report from Study
  Country: GB (occurrence: GB)
  Receive Date: 20160520
  Receipt Date: 20160826
  Transmission Date: 20161109
  Serious: Yes (Other)
  Sender: FDA-Public Use
  Company Number: GB-PFIZER INC-2016259780

PATIENT
  Age: 67 Year
  Sex: Female

DRUGS (14)
  1. MAXOLON [Concomitant]
     Active Substance: METOCLOPRAMIDE HYDROCHLORIDE
     Dosage: UNK
     Route: 048
  2. FUROSEMIDE. [Concomitant]
     Active Substance: FUROSEMIDE
     Dosage: UNK
     Route: 048
  3. BOSUTINIB [Suspect]
     Active Substance: BOSUTINIB
     Dosage: 100 MG, 1X/DAY
     Dates: start: 20110830
  4. ENALAPRIL [Concomitant]
     Active Substance: ENALAPRIL
     Dosage: UNK
     Route: 048
  5. BOSUTINIB [Suspect]
     Active Substance: BOSUTINIB
     Dosage: 400 MG, 1X/DAY
     Dates: start: 20101110, end: 20110203
  6. BOSUTINIB [Suspect]
     Active Substance: BOSUTINIB
     Dosage: 100 MG, 1X/DAY
     Dates: start: 20110712, end: 20110812
  7. ATENOLOL. [Concomitant]
     Active Substance: ATENOLOL
     Dosage: UNK
     Route: 048
  8. BOSUTINIB [Suspect]
     Active Substance: BOSUTINIB
     Dosage: 300 MG, 1X/DAY
     Dates: start: 20110606, end: 20110613
  9. BOSUTINIB [Suspect]
     Active Substance: BOSUTINIB
     Dosage: 200 MG, 1X/DAY
     Dates: start: 20111011, end: 20111110
  10. LOPERAMIDE [Concomitant]
     Active Substance: LOPERAMIDE
     Dosage: UNK
     Route: 048
  11. BOSUTINIB [Suspect]
     Active Substance: BOSUTINIB
     Dosage: 500 MG, 1X/DAY
     Dates: start: 20110203, end: 20110407
  12. AMLODIPINE [Concomitant]
     Active Substance: AMLODIPINE BESYLATE
     Dosage: UNK
     Route: 048
  13. BISOPROLOL [Concomitant]
     Active Substance: BISOPROLOL
     Dosage: UNK
     Route: 048
  14. ASPIRIN. [Concomitant]
     Active Substance: ASPIRIN
     Dosage: UNK
     Route: 048

REACTIONS (5)
  - Atrial fibrillation [Not Recovered/Not Resolved]
  - Weight increased [Recovered/Resolved]
  - Alanine aminotransferase increased [Recovered/Resolved]
  - Chest pain [Unknown]
  - Electrocardiogram QT prolonged [Recovered/Resolved]

NARRATIVE: CASE EVENT DATE: 20110531
